FAERS Safety Report 4433362-X (Version None)
Quarter: 2004Q3

REPORT INFORMATION
  Report Type: 
  Country: None (occurrence: None)
  Receive Date: 20040824
  Receipt Date: 20040812
  Transmission Date: 20050211
  Serious: Yes (Other)
  Sender: FDA-Public Use
  Company Number: 2004228700GB

PATIENT
  Age: 25 Year
  Sex: Female
  Weight: 95 kg

DRUGS (3)
  1. DEPO-PROVERA [Suspect]
     Indication: CONTRACEPTION
     Dosage: 150 MG, EVERY 3 MONTHS, 1ST INJ., INTRAMUSCULAR
     Route: 030
     Dates: start: 20040731, end: 20010731
  2. DEPO-PROVERA [Suspect]
     Indication: CONTRACEPTION
     Dosage: 150 MG, EVERY 3 MONTHS, 1ST INJ., INTRAMUSCULAR
     Route: 030
     Dates: start: 20040502, end: 20040502
  3. GABAPENTIN [Suspect]
     Indication: NERVOUS SYSTEM DISORDER
     Dosage: 600 MG, QD
     Dates: start: 20010101

REACTIONS (2)
  - DRUG INTERACTION [None]
  - UNINTENDED PREGNANCY [None]
